FAERS Safety Report 9087049 (Version 1)
Quarter: 2013Q1

REPORT INFORMATION
  Report Type: Report from Study
  Country: US (occurrence: US)
  Receive Date: 20130131
  Receipt Date: 20130131
  Transmission Date: 20140127
  Serious: Yes (Other)
  Sender: FDA-Public Use
  Company Number: US-JNJFOC-20130115446

PATIENT
  Sex: 0

DRUGS (1)
  1. STELARA [Suspect]
     Indication: CROHN^S DISEASE

REACTIONS (3)
  - Fistula [Unknown]
  - Off label use [Unknown]
  - Adverse event [Unknown]
